FAERS Safety Report 4773346-5 (Version None)
Quarter: 2005Q3

REPORT INFORMATION
  Report Type: 
  Country: None (occurrence: None)
  Receive Date: 20050916
  Receipt Date: 20050906
  Transmission Date: 20060218
  Serious: Yes (Other)
  Sender: FDA-Public Use
  Company Number: 2005124837

PATIENT
  Sex: Male

DRUGS (10)
  1. DILANTIN [Suspect]
     Indication: CONVULSION
     Dosage: ORAL
     Route: 048
     Dates: start: 19980101
  2. DILANTIN [Suspect]
     Indication: CONVULSION
     Dosage: ORAL
     Route: 048
     Dates: start: 20030101
  3. NORVASC [Concomitant]
  4. LEVOXYL [Concomitant]
  5. ALLOPURINOL [Concomitant]
  6. DIPYRIDAMOLE [Concomitant]
  7. TENEX [Concomitant]
  8. CARDURA [Concomitant]
  9. XANAX [Concomitant]
  10. ENSURE PLUS (CARBOHYDRATES NOS, ELECTROLYTES NOS, FATTY ACID NOS, MINE [Concomitant]

REACTIONS (15)
  - ABDOMINAL PAIN UPPER [None]
  - ANTICONVULSANT DRUG LEVEL BELOW THERAPEUTIC [None]
  - AORTIC ANEURYSM [None]
  - CATARACT OPERATION [None]
  - CONVULSION [None]
  - DYSPHAGIA [None]
  - GALLBLADDER DISORDER [None]
  - HERNIA [None]
  - OESOPHAGEAL PAIN [None]
  - ORAL INTAKE REDUCED [None]
  - ORAL PAIN [None]
  - PHAGOPHOBIA [None]
  - PHARMACEUTICAL PRODUCT COMPLAINT [None]
  - PHARYNGOLARYNGEAL PAIN [None]
  - WEIGHT DECREASED [None]
